FAERS Safety Report 9007531 (Version 1)
Quarter: 2013Q1

REPORT INFORMATION
  Report Type: Spontaneous
  Country: US (occurrence: US)
  Receive Date: 20130111
  Receipt Date: 20130111
  Transmission Date: 20140127
  Serious: Yes (Other)
  Sender: FDA-Public Use
  Company Number: US-MERCK-0901USA02223

PATIENT
  Age: 4 Year
  Sex: Male
  Weight: 16.78 kg

DRUGS (1)
  1. SINGULAIR [Suspect]
     Indication: ASTHMA
     Dosage: 4 MG, BEFORE BED
     Route: 048
     Dates: start: 20080723, end: 20080825

REACTIONS (15)
  - Abnormal behaviour [Unknown]
  - Abdominal pain upper [Unknown]
  - Aggression [Unknown]
  - Anger [Unknown]
  - Cough [Unknown]
  - Crying [Unknown]
  - Dysphonia [Unknown]
  - Eye swelling [Unknown]
  - Fatigue [Unknown]
  - Fight in school [Unknown]
  - Headache [Unknown]
  - Mood altered [Unknown]
  - Nasal congestion [Unknown]
  - Somnolence [Unknown]
  - Vomiting [Unknown]
